FAERS Safety Report 5400327-0 (Version None)
Quarter: 2007Q3

REPORT INFORMATION
  Report Type: 
  Country: None (occurrence: None)
  Receive Date: 20070730
  Receipt Date: 20070720
  Transmission Date: 20080115
  Serious: Yes (Other)
  Sender: FDA-Public Use
  Company Number: JP-ROCHE-498806

PATIENT
  Age: 73 Year
  Sex: Male

DRUGS (3)
  1. TICLOPIDINE HCL [Suspect]
     Route: 048
     Dates: start: 20070328, end: 20070407
  2. PLAVIX [Suspect]
     Route: 048
     Dates: start: 20070408, end: 20070424
  3. ASPIRIN [Concomitant]
     Dosage: GENERIC NAME REPORTED AS ACETYLSALICYLIC ACID.
     Dates: start: 20070330

REACTIONS (4)
  - ALTERED STATE OF CONSCIOUSNESS [None]
  - HEPATIC ENZYME INCREASED [None]
  - HYPERBILIRUBINAEMIA [None]
  - JAUNDICE [None]
